FAERS Safety Report 4630576-0 (Version None)
Quarter: 2005Q2

REPORT INFORMATION
  Report Type: 
  Country: None (occurrence: None)
  Receive Date: 20050408
  Receipt Date: 20050405
  Transmission Date: 20051028
  Serious: Yes (Disabling)
  Sender: FDA-Public Use
  Company Number: US-MERCK-0504USA00652

PATIENT
  Age: 56 Year
  Sex: Male

DRUGS (13)
  1. FOSAMAX [Suspect]
     Indication: OSTEOPOROSIS
     Route: 048
     Dates: start: 19940101, end: 20040101
  2. FOSAMAX [Suspect]
     Route: 048
     Dates: start: 20040101
  3. AMITRIPTYLINE HYDROCHLORIDE [Concomitant]
     Route: 065
  4. TRAZODONE HYDROCHLORIDE [Concomitant]
     Route: 065
  5. DURAGESIC-100 [Concomitant]
     Indication: PAIN
     Route: 065
  6. VITAMINS (UNSPECIFIED) [Concomitant]
     Route: 065
  7. CALCIUM CARBONATE [Concomitant]
     Route: 065
  8. HYDROXYZINE HYDROCHLORIDE [Concomitant]
     Route: 065
  9. DILANTIN [Concomitant]
     Route: 065
  10. LORATADINE [Concomitant]
     Route: 065
  11. ASPIRIN [Concomitant]
     Route: 065
  12. TERAZOSIN HYDROCHLORIDE [Concomitant]
     Route: 065
  13. DIPHENHYDRAMINE HYDROCHLORIDE [Concomitant]
     Route: 065

REACTIONS (3)
  - FALL [None]
  - RIB FRACTURE [None]
  - THERAPEUTIC RESPONSE DECREASED [None]
